FAERS Safety Report 11856699 (Version 1)
Quarter: 2015Q4

REPORT INFORMATION
  Report Type: Spontaneous
  Country: DE (occurrence: DE)
  Receive Date: 20151221
  Receipt Date: 20151221
  Transmission Date: 20160305
  Serious: Yes (Other)
  Sender: FDA-Public Use
  Company Number: DE-PFIZER INC-2015454466

PATIENT
  Age: 31 Year
  Sex: Female
  Weight: 55 kg

DRUGS (5)
  1. SEROQUEL XR [Suspect]
     Active Substance: QUETIAPINE FUMARATE
     Indication: DEPRESSION
  2. AMITRIPTYLIN [Concomitant]
     Active Substance: AMITRIPTYLINE
     Indication: DEPRESSION
     Dosage: 50 MG, 1X/DAY 1 TRIMESTER 0. - 7.6. GESTATIONAL WEEK
     Route: 048
  3. VENLAFAXINE HCL [Suspect]
     Active Substance: VENLAFAXINE HYDROCHLORIDE
     Indication: DEPRESSION
     Dosage: 300 MG, DAILY 1 TRIMESTER 0. - 36.1. GESTATIONAL WEEK
     Route: 048
     Dates: start: 20141021
  4. FOLIO [Concomitant]
     Active Substance: FOLIC ACID
     Indication: VITAMIN SUPPLEMENTATION
     Dosage: 0.4 MG, 1X/DAY 2 TRIMESTER 13. - 33.6. GESTATIONAL WEEK
     Route: 048
  5. SEROQUEL XR [Suspect]
     Active Substance: QUETIAPINE FUMARATE
     Indication: PSYCHOTIC DISORDER
     Dosage: 150 MG, 1X/DAY 1 TRIMESTER 0. - 36.1. GESTATIONAL WEEK
     Route: 048
     Dates: start: 20141021

REACTIONS (1)
  - Cholestasis [Unknown]
